FAERS Safety Report 8531430-4 (Version None)
Quarter: 2012Q3

REPORT INFORMATION
  Report Type: 
  Country: None (occurrence: None)
  Receive Date: 20120723
  Receipt Date: 20120711
  Transmission Date: 20120928
  Serious: Yes (Hospitalization, Disabling, Other)
  Sender: FDA-Public Use
  Company Number: US-009507513-1201USA03705

PATIENT

DRUGS (10)
  1. CALCIUM (UNSPECIFIED) [Concomitant]
     Dosage: UNK UNK, TID
  2. MK-0966 [Concomitant]
     Indication: BURSITIS
     Dosage: 12.5-25
     Route: 048
     Dates: start: 20010110
  3. PREMARIN [Concomitant]
     Dosage: 0.625 MG, QD
  4. MEPROBAMATE [Concomitant]
     Dosage: 400 MG, BID
  5. FOSAMAX [Suspect]
     Indication: OSTEOPOROSIS
     Dosage: 70 MG, QW
     Route: 048
     Dates: start: 20010227, end: 20080401
  6. CLARINEX [Concomitant]
  7. CLARITIN [Concomitant]
     Indication: RHINITIS ALLERGIC
     Dosage: 10 MG, QD
     Route: 048
  8. ZYRTEC [Concomitant]
     Indication: RHINITIS ALLERGIC
     Dosage: 10 MG, QD
     Route: 048
     Dates: start: 20021206
  9. FOSAMAX [Suspect]
     Dosage: 10 MG, QD
     Route: 048
  10. FOSAMAX [Suspect]
     Dosage: 70 MG, QW
     Route: 048
     Dates: start: 20080411, end: 20100501

REACTIONS (34)
  - HEAD INJURY [None]
  - LOSS OF CONSCIOUSNESS [None]
  - HEPARIN-INDUCED THROMBOCYTOPENIA [None]
  - OSTEOARTHRITIS [None]
  - DEPRESSION [None]
  - DEAFNESS [None]
  - HYPOTHYROIDISM [None]
  - URINARY INCONTINENCE [None]
  - CONJUNCTIVITIS [None]
  - ARTHRALGIA [None]
  - PAIN IN EXTREMITY [None]
  - SPONDYLOLISTHESIS [None]
  - DEVICE FAILURE [None]
  - SPINAL OSTEOARTHRITIS [None]
  - HYPERTENSION [None]
  - ASYMPTOMATIC BACTERIURIA [None]
  - DRUG INEFFECTIVE [None]
  - FEMUR FRACTURE [None]
  - ANXIETY [None]
  - ARTHROPATHY [None]
  - OEDEMA [None]
  - FRACTURE NONUNION [None]
  - LOW TURNOVER OSTEOPATHY [None]
  - ADVERSE EVENT [None]
  - URINARY TRACT INFECTION [None]
  - CARPAL TUNNEL SYNDROME [None]
  - FALL [None]
  - HAEMORRHAGIC ANAEMIA [None]
  - OSTEOPENIA [None]
  - NEUROPATHY PERIPHERAL [None]
  - THYROID NEOPLASM [None]
  - PAIN [None]
  - BENIGN NEOPLASM OF SKIN [None]
  - UPPER RESPIRATORY TRACT INFECTION [None]
